FAERS Safety Report 12068601 (Version 3)
Quarter: 2018Q4

REPORT INFORMATION
  Report Type: Spontaneous
  Country: FR (occurrence: FR)
  Receive Date: 20160211
  Receipt Date: 20181002
  Transmission Date: 20190204
  Serious: Yes (Hospitalization)
  Sender: FDA-Public Use
  Company Number: PHHY2015FR132283

PATIENT
  Age: 67 Year
  Sex: Male
  Weight: 86 kg

DRUGS (6)
  1. PARACETAMOL [Suspect]
     Active Substance: ACETAMINOPHEN
     Indication: PREMEDICATION
     Dosage: 1000 MG, TID (DAYS 1, 4, 6)
     Route: 048
     Dates: start: 20141107, end: 20141113
  2. CYTARABINE. [Suspect]
     Active Substance: CYTARABINE
     Indication: ACUTE MYELOID LEUKAEMIA
     Dosage: 2200 MG, BID (DAY 1 TO 6)
     Route: 065
     Dates: start: 20141107, end: 20141112
  3. MYLOTARG [Suspect]
     Active Substance: GEMTUZUMAB OZOGAMICIN
     Indication: ACUTE LEUKAEMIA
     Dosage: 3 MG/M2, QD ( DAYS 1,4,7)
     Route: 065
     Dates: start: 20141107, end: 20141113
  4. MITOXANTRONE TEVA [Suspect]
     Active Substance: MITOXANTRONE HYDROCHLORIDE
     Indication: ACUTE MYELOID LEUKAEMIA
     Dosage: 12 MG/M2, QD (DAYS 1,2)
     Route: 065
     Dates: start: 20141107, end: 20141108
  5. POLARAMINE [Suspect]
     Active Substance: DEXCHLORPHENIRAMINE MALEATE
     Indication: PREMEDICATION
     Dosage: 5 MG, QD ( DAYS 1, 4, 6)
     Route: 048
     Dates: start: 20141107, end: 20141113
  6. ZOPHREN [Suspect]
     Active Substance: ONDANSETRON
     Indication: PREMEDICATION
     Dosage: 1 DF, BID  (DAYS 1-6)
     Route: 042
     Dates: start: 20141107, end: 20141112

REACTIONS (5)
  - Febrile neutropenia [Recovered/Resolved]
  - Staphylococcus test positive [Recovered/Resolved]
  - Nausea [Recovered/Resolved]
  - Vomiting [Recovered/Resolved]
  - Diarrhoea [Recovered/Resolved]

NARRATIVE: CASE EVENT DATE: 201411
